FAERS Safety Report 13674790 (Version 2)
Quarter: 2020Q2

REPORT INFORMATION
  Report Type: Report from Study
  Country: US (occurrence: US)
  Receive Date: 20170621
  Receipt Date: 20200402
  Transmission Date: 20200713
  Serious: Yes (Other)
  Sender: FDA-Public Use
  Company Number: US-AMGEN-USASP2017092441

PATIENT
  Age: 73 Year
  Sex: Female

DRUGS (1)
  1. ENBREL [Suspect]
     Active Substance: ETANERCEPT
     Indication: PSORIATIC ARTHROPATHY
     Dosage: 50 MILLIGRAM, QWK
     Route: 065

REACTIONS (6)
  - Injury associated with device [Unknown]
  - Abdominal distension [Unknown]
  - Sinusitis [Unknown]
  - Loss of consciousness [Unknown]
  - Wrong technique in product usage process [Unknown]
  - Injection site vesicles [Not Recovered/Not Resolved]

NARRATIVE: CASE EVENT DATE: 202003
